FAERS Safety Report 12917125 (Version 1)
Quarter: 2016Q4

REPORT INFORMATION
  Report Type: Spontaneous
  Country: US (occurrence: US)
  Receive Date: 20161107
  Receipt Date: 20161107
  Transmission Date: 20170207
  Serious: Yes (Other)
  Sender: FDA-Public Use
  Company Number: US-AUROBINDO-AUR-APL-2016-13470

PATIENT
  Sex: Female

DRUGS (2)
  1. DEOXYCHOLIC ACID [Concomitant]
     Active Substance: DEOXYCHOLIC ACID
     Indication: PRODUCT USED FOR UNKNOWN INDICATION
     Dosage: UNK, 0.2 ML ALIQUOTS (10 MG/1 ML) INTO THE PREPLATYSMAL FAT
     Route: 065
  2. LIDOCAINE. [Suspect]
     Active Substance: LIDOCAINE
     Indication: PAIN
     Dosage: UNK
     Route: 065

REACTIONS (1)
  - Trigeminal nerve paresis [Recovered/Resolved]
